FAERS Safety Report 19403850 (Version 1)
Quarter: 2021Q2

REPORT INFORMATION
  Report Type: Spontaneous
  Country: ES (occurrence: ES)
  Receive Date: 20210611
  Receipt Date: 20210611
  Transmission Date: 20210717
  Serious: Yes (Hospitalization)
  Sender: FDA-Public Use
  Company Number: ES-MACLEODS PHARMACEUTICALS US LTD-MAC2021031421

PATIENT

DRUGS (1)
  1. ACYCLOVIR. [Suspect]
     Active Substance: ACYCLOVIR
     Indication: VARICELLA ZOSTER VIRUS INFECTION
     Dosage: 800 MILLIGRAM/ 4 HRS
     Route: 048

REACTIONS (3)
  - Toxic encephalopathy [Recovered/Resolved]
  - Toxicity to various agents [Unknown]
  - Overdose [Unknown]
